FAERS Safety Report 4476805-8 (Version None)
Quarter: 2004Q4

REPORT INFORMATION
  Report Type: 
  Country: None (occurrence: None)
  Receive Date: 20041013
  Receipt Date: 20041004
  Transmission Date: 20050328
  Serious: No
  Sender: FDA-Public Use
  Company Number: BDI-006546

PATIENT
  Sex: Female

DRUGS (2)
  1. CHOLETEC [Suspect]
     Indication: HEPATOBILIARY SCAN
     Dosage: 4 MC ONCE IV
     Route: 042
     Dates: start: 20041001, end: 20041001
  2. TOPROL-XL [Concomitant]

REACTIONS (7)
  - CONVULSION [None]
  - FOAMING AT MOUTH [None]
  - LOSS OF CONSCIOUSNESS [None]
  - MUSCLE RIGIDITY [None]
  - MUSCLE SPASMS [None]
  - NAUSEA [None]
  - POST PROCEDURAL COMPLICATION [None]
